FAERS Safety Report 11177843 (Version 1)
Quarter: 2015Q2

REPORT INFORMATION
  Report Type: Spontaneous
  Country: US (occurrence: None)
  Receive Date: 20150515
  Receipt Date: 20150515
  Transmission Date: 20150821
  Serious: Yes (Other)
  Sender: FDA-Public Use
  Company Number: 2014021403

PATIENT
  Age: 38 Year
  Sex: Female

DRUGS (1)
  1. CIMZIA [Suspect]
     Active Substance: CERTOLIZUMAB PEGOL
     Indication: RHEUMATOID ARTHRITIS
     Dosage: 400 MG AT WEEK 0
     Dates: start: 20141125, end: 2014

REACTIONS (6)
  - Gastroenteritis viral [None]
  - Muscle spasms [None]
  - Dysarthria [None]
  - Sinusitis [None]
  - Lethargy [None]
  - Peripheral swelling [None]

NARRATIVE: CASE EVENT DATE: 20141129
